FAERS Safety Report 7612047-2 (Version None)
Quarter: 2011Q3

REPORT INFORMATION
  Report Type: 
  Country: None (occurrence: None)
  Receive Date: 20110715
  Receipt Date: 20110707
  Transmission Date: 20111222
  Serious: Yes (Hospitalization)
  Sender: FDA-Public Use
  Company Number: FR-SANOFI-AVENTIS-2011SA044246

PATIENT
  Age: 64 Year
  Sex: Male

DRUGS (9)
  1. CIMETIDINE [Concomitant]
  2. CABAZITAXEL [Suspect]
     Route: 042
     Dates: start: 20110614, end: 20110614
  3. CABAZITAXEL [Suspect]
     Route: 042
     Dates: start: 20110705, end: 20110705
  4. ONDANSERTRON HYDROCHLORIDE [Concomitant]
  5. PREDNISOLONE [Concomitant]
     Indication: PROSTATE CANCER
     Route: 048
  6. LEUPROLIDE ACETATE [Concomitant]
  7. LENOGRASTIM [Concomitant]
  8. CABAZITAXEL [Suspect]
     Indication: PROSTATE CANCER
     Route: 042
     Dates: start: 20110503, end: 20110503
  9. CABAZITAXEL [Suspect]
     Route: 042
     Dates: start: 20110524, end: 20110524

REACTIONS (1)
  - PULMONARY EMBOLISM [None]
